FAERS Safety Report 25251543 (Version 1)
Quarter: 2025Q2

REPORT INFORMATION
  Report Type: Spontaneous
  Country: CN (occurrence: CN)
  Receive Date: 20250429
  Receipt Date: 20250429
  Transmission Date: 20250716
  Serious: Yes (Hospitalization)
  Sender: FRESENIUS KABI
  Company Number: CN-FreseniusKabi-FK202506298

PATIENT
  Age: 39 Year
  Sex: Female
  Weight: 52.5 kg

DRUGS (4)
  1. PROPOFOL [Suspect]
     Active Substance: PROPOFOL
     Indication: Cholelithiasis
     Dosage: FOA- INJECTION
     Route: 041
     Dates: start: 20240914, end: 20240914
  2. REMIFENTANIL HYDROCHLORIDE [Suspect]
     Active Substance: REMIFENTANIL HYDROCHLORIDE
     Indication: Cholelithiasis
     Dosage: FOA- INJECTION?DOSE: 0 MG
     Route: 041
     Dates: start: 20240914, end: 20240914
  3. REMIFENTANIL HYDROCHLORIDE [Suspect]
     Active Substance: REMIFENTANIL HYDROCHLORIDE
     Dosage: FOA- INJECTION?DOSE: 0 MG
     Route: 041
     Dates: start: 20240914, end: 20240914
  4. CISATRACURIUM BESYLATE [Suspect]
     Active Substance: CISATRACURIUM BESYLATE
     Indication: Cholelithiasis
     Dosage: FOA- INJECTION
     Route: 041
     Dates: start: 20240914, end: 20240914

REACTIONS (1)
  - Anaphylactic shock [Recovering/Resolving]

NARRATIVE: CASE EVENT DATE: 20240914
